FAERS Safety Report 5140361-1 (Version None)
Quarter: 2006Q4

REPORT INFORMATION
  Report Type: 
  Country: None (occurrence: None)
  Receive Date: 20061031
  Receipt Date: 20061024
  Transmission Date: 20070319
  Serious: Yes (Hospitalization)
  Sender: FDA-Public Use
  Company Number: US-SANOFI-SYNTHELABO-A03200606420

PATIENT
  Sex: Male
  Weight: 63.49 kg

DRUGS (7)
  1. EYE VITAMINS [Concomitant]
     Dosage: UNK
     Route: 065
  2. DIURETIC [Concomitant]
     Dosage: UNK
     Route: 048
  3. LANOXIN [Concomitant]
     Dosage: UNK
     Route: 048
  4. TOPROL-XL [Concomitant]
     Dosage: UNK
     Route: 048
  5. ASPIRIN [Concomitant]
     Dosage: UNK
     Route: 048
  6. PLAVIX [Suspect]
     Indication: CEREBROVASCULAR ACCIDENT
     Dosage: UNK
     Route: 048
  7. PLAVIX [Suspect]
     Indication: CARDIAC DISORDER
     Dosage: UNK
     Route: 048

REACTIONS (2)
  - DYSSTASIA [None]
  - NAUSEA [None]
